FAERS Safety Report 9165302 (Version 1)
Quarter: 2013Q1

REPORT INFORMATION
  Report Type: Spontaneous
  Country: UA (occurrence: None)
  Receive Date: 20130228
  Receipt Date: 20130228
  Transmission Date: 20140127
  Serious: Yes (Other)
  Sender: FDA-Public Use
  Company Number: GPV/UKR/13/0028187

PATIENT
  Age: 79 Year
  Sex: Female

DRUGS (5)
  1. ATOCOR [Suspect]
     Indication: ARTERIOSCLEROSIS
     Dates: start: 20091223
  2. ASPARCAM [Concomitant]
  3. CARDIOMAGNYL [Concomitant]
  4. PHYSIOLOGIC SALINE [Concomitant]
  5. CARDARON [Concomitant]

REACTIONS (4)
  - Angina pectoris [None]
  - Nausea [None]
  - Abdominal pain [None]
  - Headache [None]
